FAERS Safety Report 6236975-8 (Version None)
Quarter: 2009Q2

REPORT INFORMATION
  Report Type: 
  Country: None (occurrence: None)
  Receive Date: 20090619
  Receipt Date: 20090305
  Transmission Date: 20091009
  Serious: No
  Sender: FDA-Public Use
  Company Number: US-ASTRAZENECA-2009UW05941

PATIENT
  Age: 68 Year
  Sex: Male

DRUGS (5)
  1. SYMBICORT [Suspect]
     Indication: ASTHMA
     Route: 055
     Dates: start: 20090204
  2. VENTOLIN HFA [Concomitant]
     Route: 055
  3. SINGULAIR [Concomitant]
     Dates: start: 20090218
  4. AZITHROMYCIN [Concomitant]
  5. METHO-PRED PACK [Concomitant]

REACTIONS (3)
  - COUGH [None]
  - DRUG INEFFECTIVE [None]
  - PLEURAL EFFUSION [None]
